FAERS Safety Report 11906236 (Version 1)
Quarter: 2016Q1

REPORT INFORMATION
  Report Type: Spontaneous
  Country: US (occurrence: None)
  Receive Date: 20160108
  Receipt Date: 20160108
  Transmission Date: 20160526
  Serious: No
  Sender: FDA-Public Use
  Company Number: None

PATIENT
  Age: 59 Year
  Sex: Female

DRUGS (1)
  1. SIMPONI [Suspect]
     Active Substance: GOLIMUMAB
     Indication: COLITIS ULCERATIVE
     Dosage: Q4W
     Route: 058
     Dates: start: 20150921, end: 20151110

REACTIONS (2)
  - Gait disturbance [None]
  - Alopecia [None]

NARRATIVE: CASE EVENT DATE: 20150922
